FAERS Safety Report 10532784 (Version 1)
Quarter: 2014Q4

REPORT INFORMATION
  Report Type: Report from Study
  Country: GB (occurrence: GB)
  Receive Date: 20141022
  Receipt Date: 20141022
  Transmission Date: 20150529
  Serious: Yes (Hospitalization)
  Sender: FDA-Public Use
  Company Number: GB-AMGEN-GBRNI2014081117

PATIENT
  Age: 5 Year
  Sex: Male
  Weight: 16.26 kg

DRUGS (3)
  1. METHOTREXATE [Concomitant]
     Active Substance: METHOTREXATE
     Dosage: UNK
     Dates: start: 20040201, end: 20090115
  2. ETANERCEPT [Suspect]
     Active Substance: ETANERCEPT
     Indication: PRODUCT USED FOR UNKNOWN INDICATION
     Dosage: 6 MG, QWK
     Route: 065
     Dates: start: 20051107, end: 20070531
  3. ETANERCEPT [Suspect]
     Active Substance: ETANERCEPT
     Dosage: 7.2 MG, QWK
     Route: 065
     Dates: start: 20070531, end: 20140817

REACTIONS (1)
  - Herpes zoster [Unknown]

NARRATIVE: CASE EVENT DATE: 20071025
